FAERS Safety Report 8475445-3 (Version None)
Quarter: 2012Q2

REPORT INFORMATION
  Report Type: 
  Country: None (occurrence: None)
  Receive Date: 20120628
  Receipt Date: 20120620
  Transmission Date: 20120825
  Serious: Yes (Other)
  Sender: FDA-Public Use
  Company Number: DE-FRI-1000029141

PATIENT
  Age: 61 Year
  Sex: Female

DRUGS (3)
  1. RASILEZ [Suspect]
     Indication: ESSENTIAL HYPERTENSION
     Dosage: 150/ 12.5 MG
     Route: 048
     Dates: start: 20100101
  2. NEBIVOLOL [Suspect]
     Indication: ESSENTIAL HYPERTENSION
     Dosage: 2.5 MG
     Route: 048
     Dates: start: 20100101
  3. MAPROTILINE [Suspect]
     Indication: DEPRESSION
     Route: 048

REACTIONS (15)
  - FALL [None]
  - DIZZINESS [None]
  - BLOOD PRESSURE INCREASED [None]
  - NAUSEA [None]
  - OEDEMA PERIPHERAL [None]
  - FATIGUE [None]
  - PAIN IN EXTREMITY [None]
  - JOINT SWELLING [None]
  - HEADACHE [None]
  - PARAESTHESIA [None]
  - MUSCLE SPASMS [None]
  - VISUAL IMPAIRMENT [None]
  - DYSPNOEA [None]
  - COUGH [None]
  - DIARRHOEA [None]
